FAERS Safety Report 5075004-9 (Version None)
Quarter: 2006Q3

REPORT INFORMATION
  Report Type: 
  Country: None (occurrence: None)
  Receive Date: 20060804
  Receipt Date: 20060728
  Transmission Date: 20061208
  Serious: Yes (Hospitalization, Disabling)
  Sender: FDA-Public Use
  Company Number: CIP06001756

PATIENT
  Age: 53 Year
  Sex: Female
  Weight: 38.1 kg

DRUGS (32)
  1. DIDRONEL [Suspect]
     Indication: OSTEOPOROSIS
     Dosage: 400 MG DAILY, ORAL
     Route: 048
     Dates: start: 20000101, end: 20010101
  2. ACTONEL [Suspect]
     Indication: OSTEOPOROSIS
     Dosage: 35 MG ONCE WEEKLY, ORAL
     Route: 048
     Dates: start: 20010101, end: 20031001
  3. ACTONEL [Suspect]
     Indication: OSTEOPOROSIS
     Dosage: 35 MG ONCE WEEKLY, ORAL
     Route: 048
     Dates: start: 20050401
  4. FOSAMAX [Suspect]
     Indication: OSTEOPOROSIS
     Dosage: 10 MG DAILY, ORAL
     Route: 048
     Dates: start: 19960101, end: 19980101
  5. PERIDEX (CHLORHEXIDINE GLUCONATE) SOLUTION [Concomitant]
  6. LIDODERM (LIDOCAINE) PATCH [Concomitant]
  7. NYSTATIN (NYSTATIN) LIQUID [Concomitant]
  8. PERI-COLACE (DOCUSATE SODIUM, CASANTHRANOL) TABLET [Concomitant]
  9. FERROUS SULFATE (FERROUS SULFATE) TABLET [Concomitant]
  10. CALCIUM (CALCIUM) TABLET [Concomitant]
  11. MULTIVIT (VITAMINS NOS) [Concomitant]
  12. NORTRIPTYLINE HCL [Concomitant]
  13. LIDOCAINE (LIDOCAINE) SOLUTION [Concomitant]
  14. ZOFRAN (ONDANSETRON HYDROCHLORIDE) TABLET [Concomitant]
  15. PHENERGAN ^AVENTIS PHARMA^ (PROMETHAZINE HYDROCHLORIDE) TABLET [Concomitant]
  16. PHENERGAN ^AVENTIS PHARMA^ (PROMETHAZINE HYDROCHLORIDE) SUPPOSITORY [Concomitant]
  17. PLAQUENIL [Concomitant]
  18. TEMAZEPAM [Concomitant]
  19. LAMICTAL ^BURROUGHS WELLCOME^ (LAMOTRIGINE) TABLET [Concomitant]
  20. OXYCODONE (OXYCODONE) TABLET [Concomitant]
  21. ATIVAN [Concomitant]
  22. REGLAN /USA/ (METOCLOPRAMIDE HYDROCHLORIDE) TABLET [Concomitant]
  23. ZOLOFT [Concomitant]
  24. RITALIN [Concomitant]
  25. LEVOTHYROID (LEVOTHYROXINE SODIUM) TABLET [Concomitant]
  26. PROGRAF (TACROLIMUS) TABLET [Concomitant]
  27. PREDNISONE (PREDNISONE) TABLET [Concomitant]
  28. GANCICLOVIR (GANCICLOVIR) TABLET [Concomitant]
  29. PREVACID (LANSOPRAZOLE) TABLET [Concomitant]
  30. RANITIDINE (RANITIDINE) TABLET [Concomitant]
  31. BENADRYL ^WARNER-LAMBERT^ /USA/ (DIPHENHYDRAMINE HYDROCHLORIDE) TABLET [Concomitant]
  32. FLEET /DEN/ (SODIUM PHOSPHATE MONOBASIC, SODIUM PHOSPHATE DIBASIC) SUP [Concomitant]

REACTIONS (5)
  - DENTAL EXAMINATION ABNORMAL [None]
  - JAW DISORDER [None]
  - OSTEONECROSIS [None]
  - TOOTH DISCOLOURATION [None]
  - TOOTH EXTRACTION [None]
